FAERS Safety Report 5674604-2 (Version None)
Quarter: 2008Q1

REPORT INFORMATION
  Report Type: 
  Country: None (occurrence: None)
  Receive Date: 20080319
  Receipt Date: 20080319
  Transmission Date: 20080703
  Serious: Yes (Other)
  Sender: FDA-Public Use
  Company Number: None

PATIENT
  Age: 46 Year
  Sex: Female
  Weight: 76.2043 kg

DRUGS (1)
  1. TOPAMAX [Suspect]
     Indication: MIGRAINE
     Dosage: 50MG  2 TIMES A DAY PO
     Route: 048
     Dates: start: 20071203, end: 20080113

REACTIONS (7)
  - ANOREXIA [None]
  - ASTHMA [None]
  - CONDITION AGGRAVATED [None]
  - DRUG EFFECT DECREASED [None]
  - HYPOAESTHESIA FACIAL [None]
  - PARAESTHESIA [None]
  - THINKING ABNORMAL [None]
